FAERS Safety Report 7544782-9 (Version None)
Quarter: 2011Q2

REPORT INFORMATION
  Report Type: 
  Country: None (occurrence: None)
  Receive Date: 20110614
  Receipt Date: 20090316
  Transmission Date: 20111010
  Serious: Yes (Other)
  Sender: FDA-Public Use
  Company Number: US-BAYER-200915577NA

PATIENT
  Sex: Male
  Weight: 72.562 kg

DRUGS (21)
  1. LASIX [Concomitant]
     Dosage: 40 MG, QD
     Route: 048
  2. PROTAMINE SULFATE [Concomitant]
     Dosage: 250 MG, UNK
     Route: 042
     Dates: start: 20030503, end: 20030503
  3. FRESH FROZEN PLASMA [Concomitant]
     Dosage: 10 UNITS
     Route: 042
     Dates: start: 20060209
  4. TRASYLOL [Suspect]
     Indication: AORTIC ANEURYSM REPAIR
     Dosage: 200 ML CARDIOPULMONARY BYPASS PRIME
     Route: 042
     Dates: start: 20030503, end: 20030504
  5. ANCEF [Concomitant]
     Dosage: 1 G, UNK
     Route: 042
     Dates: start: 20030503, end: 20030503
  6. EPHEDRINE [Concomitant]
     Dosage: TITRATED
     Route: 042
     Dates: start: 20030503, end: 20030503
  7. LEVOPHED [Concomitant]
     Dosage: TITRATED
     Route: 042
     Dates: start: 20030503, end: 20030503
  8. RED BLOOD CELLS [Concomitant]
     Dosage: 3 UNITS
     Route: 042
     Dates: start: 20060209
  9. PLATELETS [Concomitant]
     Dosage: 3 U, ONCE
     Route: 042
     Dates: start: 20030503
  10. TRASYLOL [Suspect]
     Indication: AORTIC VALVE REPLACEMENT
     Dosage: 1 ML, ONCE, INITIAL TEST DOSE
     Route: 042
     Dates: start: 20030503, end: 20030504
  11. TRASYLOL [Suspect]
     Indication: AORTIC SURGERY
     Dosage: UNK, INFUSION
     Route: 042
     Dates: start: 20030503, end: 20030504
  12. DIGOXIN [Concomitant]
     Dosage: .25 MG, QD
     Route: 048
  13. PRIMACOR [Concomitant]
     Dosage: TITRATED
     Route: 042
     Dates: start: 20030503, end: 20030503
  14. HEPARIN [Concomitant]
     Dosage: UNK
     Route: 042
     Dates: start: 20030503, end: 20030503
  15. FRESH FROZEN PLASMA [Concomitant]
     Dosage: 4 U, ONCE
     Route: 042
     Dates: start: 20030503
  16. RED BLOOD CELLS [Concomitant]
     Dosage: 3 U, ONCE
     Route: 042
     Dates: start: 20030503
  17. TRASYLOL [Suspect]
     Indication: HEART TRANSPLANT
     Dosage: 2 CC TEST DOSE
     Route: 042
     Dates: start: 20060209
  18. TRASYLOL [Suspect]
     Dosage: UNK, INFUSION
     Route: 041
     Dates: start: 20060209
  19. LASIX [Concomitant]
     Dosage: 120 MG, UNK
     Route: 042
     Dates: start: 20030503, end: 20030503
  20. PLATELETS [Concomitant]
     Dosage: 3 UNITS
     Route: 042
     Dates: start: 20060209
  21. VANCOMYCIN [Concomitant]
     Dosage: 1 G, UNK
     Route: 042
     Dates: start: 20030503, end: 20030503

REACTIONS (9)
  - ANXIETY [None]
  - PAIN [None]
  - CEREBROVASCULAR ACCIDENT [None]
  - ANHEDONIA [None]
  - RENAL FAILURE [None]
  - INJURY [None]
  - ADVERSE EVENT [None]
  - FEAR [None]
  - DEPRESSION [None]
